FAERS Safety Report 25263260 (Version 2)
Quarter: 2025Q2

REPORT INFORMATION
  Report Type: Spontaneous
  Country: US (occurrence: US)
  Receive Date: 20250502
  Receipt Date: 20250505
  Transmission Date: 20250717
  Serious: Yes (Other)
  Sender: ALEXION PHARMACEUTICALS
  Company Number: US-AstraZeneca-CH-00860973A

PATIENT

DRUGS (2)
  1. TREMELIMUMAB [Suspect]
     Active Substance: TREMELIMUMAB
     Route: 065
  2. DURVALUMAB [Suspect]
     Active Substance: DURVALUMAB
     Route: 065

REACTIONS (1)
  - Portal vein thrombosis [Unknown]
